FAERS Safety Report 7249933-1 (Version None)
Quarter: 2011Q1

REPORT INFORMATION
  Report Type: 
  Country: None (occurrence: None)
  Receive Date: 20110128
  Receipt Date: 20100916
  Transmission Date: 20110831
  Serious: No
  Sender: FDA-Public Use
  Company Number: A0883093A

PATIENT
  Age: 60 Year
  Sex: Female

DRUGS (1)
  1. WELLBUTRIN XL [Suspect]
     Indication: DEPRESSION
     Route: 065
     Dates: start: 20080101

REACTIONS (3)
  - DRUG INEFFECTIVE [None]
  - WEIGHT DECREASED [None]
  - PRODUCT QUALITY ISSUE [None]
